FAERS Safety Report 22650002 (Version 1)
Quarter: 2023Q2

REPORT INFORMATION
  Report Type: Spontaneous
  Country: US (occurrence: None)
  Receive Date: 20230626
  Receipt Date: 20230626
  Transmission Date: 20230722
  Serious: No
  Sender: FDA-Public Use
  Company Number: None

PATIENT
  Age: 48 Year
  Sex: Female

DRUGS (1)
  1. RINVOQ [Suspect]
     Active Substance: UPADACITINIB
     Indication: Neurodermatitis
     Dates: start: 202303

REACTIONS (5)
  - Vaginal infection [None]
  - Fungal infection [None]
  - Pain [None]
  - Muscle spasms [None]
  - Nail disorder [None]
